FAERS Safety Report 7311132-2 (Version None)
Quarter: 2011Q1

REPORT INFORMATION
  Report Type: 
  Country: None (occurrence: None)
  Receive Date: 20110224
  Receipt Date: 20110214
  Transmission Date: 20110831
  Serious: Yes (Other)
  Sender: FDA-Public Use
  Company Number: US-ROCHE-755051

PATIENT
  Sex: Female

DRUGS (1)
  1. AVASTIN [Suspect]
     Route: 065

REACTIONS (2)
  - MACULAR DEGENERATION [None]
  - DRUG INEFFECTIVE [None]
